FAERS Safety Report 15716170 (Version 2)
Quarter: 2018Q4

REPORT INFORMATION
  Report Type: Spontaneous
  Country: RU (occurrence: RU)
  Receive Date: 20181213
  Receipt Date: 20181214
  Transmission Date: 20190205
  Serious: Yes (Death, Hospitalization)
  Sender: FDA-Public Use
  Company Number: RU-009507513-1812RUS004188

PATIENT
  Age: 66 Year
  Sex: Male

DRUGS (6)
  1. CYCLOSPORINE. [Interacting]
     Active Substance: CYCLOSPORINE
     Indication: POSTOPERATIVE CARE
     Dosage: 150 MILLIGRAM PER DAY
  2. SIMVASTATIN. [Suspect]
     Active Substance: SIMVASTATIN
     Indication: MYOCARDIAL ISCHAEMIA
     Dosage: 30 MILLIGRAM/DAY
     Route: 048
  3. PREDNISOLONE. [Interacting]
     Active Substance: PREDNISOLONE
     Indication: POSTOPERATIVE CARE
     Dosage: 7.5 MILLIGRAM, PER DAY
     Route: 048
  4. SIMVASTATIN. [Suspect]
     Active Substance: SIMVASTATIN
     Dosage: 60 MILLIGRAM/DAY
  5. COLCHICINE. [Interacting]
     Active Substance: COLCHICINE
     Indication: GOUT
     Dosage: 1.2 MILLIGRAM, PER DAY
  6. MYCOPHENOLATE SODIUM [Interacting]
     Active Substance: MYCOPHENOLATE SODIUM
     Indication: POSTOPERATIVE CARE
     Dosage: 500 MILLIGRAM, PER DAY

REACTIONS (2)
  - Drug interaction [Fatal]
  - Myopathy [Fatal]
